FAERS Safety Report 7152687-0 (Version None)
Quarter: 2010Q4

REPORT INFORMATION
  Report Type: 
  Country: None (occurrence: None)
  Receive Date: 20101213
  Receipt Date: 20101202
  Transmission Date: 20110411
  Serious: Yes (Death, Hospitalization, Other)
  Sender: FDA-Public Use
  Company Number: FR-BRISTOL-MYERS SQUIBB COMPANY-15431877

PATIENT
  Age: 82 Year
  Sex: Female

DRUGS (3)
  1. ORENCIA [Suspect]
     Dosage: 1 DF= 250MG/VIAL;LAST INF-19OCT10 INF:3
     Route: 042
  2. IMUREL [Concomitant]
  3. KARDEGIC [Concomitant]

REACTIONS (4)
  - CARDIAC ARREST [None]
  - GENERAL PHYSICAL HEALTH DETERIORATION [None]
  - HIP FRACTURE [None]
  - VARICOSE VEIN RUPTURED [None]
